FAERS Safety Report 6376785-4 (Version None)
Quarter: 2009Q3

REPORT INFORMATION
  Report Type: 
  Country: None (occurrence: None)
  Receive Date: 20090924
  Receipt Date: 20090924
  Transmission Date: 20100115
  Serious: No
  Sender: FDA-Public Use
  Company Number: None

PATIENT
  Age: 53 Year
  Sex: Male

DRUGS (1)
  1. CHERATUSSIN AC LIQUID QUALITEST [Suspect]
     Indication: COUGH
     Dosage: 1-2TSP Q 6H PRN ORAL
     Route: 048
     Dates: start: 20090827

REACTIONS (1)
  - DRUG INEFFECTIVE [None]
